FAERS Safety Report 6783682-9 (Version None)
Quarter: 2010Q2

REPORT INFORMATION
  Report Type: 
  Country: None (occurrence: None)
  Receive Date: 20100622
  Receipt Date: 20100607
  Transmission Date: 20101027
  Serious: Yes (Life-Threatening, Hospitalization, Other)
  Sender: FDA-Public Use
  Company Number: DE-ROCHE-698354

PATIENT
  Sex: Male
  Weight: 88 kg

DRUGS (6)
  1. TOCILIZUMAB [Suspect]
     Indication: RHEUMATOID ARTHRITIS
     Dosage: MONTHLY DOSAGE 752 MG. LAST APPLICATIONS ON 9-DEC-2009, 7-JAN-2010, 4-FEB-2010 AND ON 3-MAR-2010
     Route: 042
     Dates: start: 20091111
  2. DECORTIN H [Concomitant]
     Indication: RHEUMATOID ARTHRITIS
     Route: 048
  3. OXYGESIC [Concomitant]
     Indication: RHEUMATOID ARTHRITIS
     Route: 048
  4. METHOTREXATE [Concomitant]
     Indication: RHEUMATOID ARTHRITIS
     Route: 058
     Dates: end: 20000901
  5. METHOTREXATE [Concomitant]
     Route: 058
     Dates: start: 20010901
  6. METHOTREXATE [Concomitant]
     Route: 058

REACTIONS (8)
  - ALANINE AMINOTRANSFERASE INCREASED [None]
  - ANAEMIA [None]
  - ASPARTATE AMINOTRANSFERASE INCREASED [None]
  - DEVICE RELATED INFECTION [None]
  - GAMMA-GLUTAMYLTRANSFERASE INCREASED [None]
  - GASTRITIS [None]
  - PSORIASIS [None]
  - SKIN ULCER [None]
